FAERS Safety Report 8976337 (Version 2)
Quarter: 2013Q3

REPORT INFORMATION
  Report Type: Spontaneous
  Country: NL (occurrence: NL)
  Receive Date: 20121220
  Receipt Date: 20130701
  Transmission Date: 20140515
  Serious: Yes (Other)
  Sender: FDA-Public Use
  Company Number: PHHY2012NL094308

PATIENT
  Sex: Female

DRUGS (2)
  1. GILENYA [Suspect]
     Route: 048
     Dates: start: 20101207
  2. DEXAMETHASONE [Concomitant]
     Dosage: UNK UKN, UNK
     Dates: start: 201206

REACTIONS (2)
  - Meningioma [Unknown]
  - Lymphocyte count decreased [Unknown]
